FAERS Safety Report 5864536-9 (Version None)
Quarter: 2008Q3

REPORT INFORMATION
  Report Type: 
  Country: None (occurrence: None)
  Receive Date: 20080829
  Receipt Date: 20080825
  Transmission Date: 20090109
  Serious: Yes (Hospitalization)
  Sender: FDA-Public Use
  Company Number: JP-AVENTIS-200812046JP

PATIENT
  Age: 74 Year
  Sex: Male

DRUGS (4)
  1. EUGLUCON [Suspect]
     Indication: DIABETES MELLITUS
     Dosage: DOSE: 2.5 MG
     Route: 048
  2. LANSOPRAZOLE [Suspect]
  3. AMOXICILLIN [Suspect]
  4. CLARITHROMYCIN [Suspect]

REACTIONS (2)
  - DRUG INTERACTION [None]
  - HYPOGLYCAEMIC COMA [None]
